FAERS Safety Report 22064157 (Version 1)
Quarter: 2023Q1

REPORT INFORMATION
  Report Type: Spontaneous
  Country: US (occurrence: None)
  Receive Date: 20230304
  Receipt Date: 20230304
  Transmission Date: 20230418
  Serious: Yes (Other)
  Sender: FDA-Public Use
  Company Number: None

PATIENT
  Age: 31 Year
  Sex: Female
  Weight: 58.5 kg

DRUGS (3)
  1. DEXTROAMPHET SACCHARAT, AMPHET ASPARTATE, DEXTROAMPHET SULFATE AND AMP [Suspect]
     Active Substance: AMPHETAMINE ASPARTATE\AMPHETAMINE SULFATE\DEXTROAMPHETAMINE SACCHARATE\DEXTROAMPHETAMINE SULFATE
     Indication: Attention deficit hyperactivity disorder
  2. CLONAZEPAM [Concomitant]
     Active Substance: CLONAZEPAM
  3. LISINOPRIL [Concomitant]
     Active Substance: LISINOPRIL

REACTIONS (18)
  - Product substitution issue [None]
  - Hypersensitivity [None]
  - Migraine [None]
  - Anxiety [None]
  - Nausea [None]
  - Renal pain [None]
  - Drug ineffective [None]
  - Intentional product use issue [None]
  - Off label use [None]
  - Therapy interrupted [None]
  - Housebound [None]
  - Energy increased [None]
  - Product supply issue [None]
  - Manufacturing materials issue [None]
  - Fatigue [None]
  - Heart rate increased [None]
  - Headache [None]
  - Agoraphobia [None]

NARRATIVE: CASE EVENT DATE: 20221101
